FAERS Safety Report 4417368-2 (Version None)
Quarter: 2004Q3

REPORT INFORMATION
  Report Type: 
  Country: None (occurrence: None)
  Receive Date: 20040802
  Receipt Date: 20040719
  Transmission Date: 20050211
  Serious: Yes (Hospitalization, Other)
  Sender: FDA-Public Use
  Company Number: US-JNJFOC-20040503138

PATIENT
  Age: 42 Year
  Sex: Female
  Weight: 59.4212 kg

DRUGS (6)
  1. REMICADE [Suspect]
     Indication: RHEUMATOID ARTHRITIS
     Dosage: SEE IMAGE
     Route: 042
     Dates: start: 20030201
  2. REMICADE [Suspect]
     Indication: RHEUMATOID ARTHRITIS
     Dosage: SEE IMAGE
     Route: 042
     Dates: start: 20040303
  3. ARAVA [Suspect]
     Indication: DRUG USE FOR UNKNOWN INDICATION
     Dosage: 20 MG, ORAL
     Route: 048
  4. CAPTOPRIL [Concomitant]
  5. ADVAIR (SERETIDE MITE) [Concomitant]
  6. VENTOLIN [Concomitant]

REACTIONS (8)
  - CHEST PAIN [None]
  - DRUG HYPERSENSITIVITY [None]
  - DYSPHAGIA [None]
  - EOSINOPHILIA [None]
  - GRANULOMA [None]
  - LUNG ABSCESS [None]
  - LUNG NEOPLASM [None]
  - PULMONARY FIBROSIS [None]
